FAERS Safety Report 25909784 (Version 1)
Quarter: 2025Q4

REPORT INFORMATION
  Report Type: Spontaneous
  Country: MY (occurrence: MY)
  Receive Date: 20251012
  Receipt Date: 20251012
  Transmission Date: 20260118
  Serious: Yes (Other)
  Sender: ALEXION PHARMACEUTICALS
  Company Number: MY-ASTRAZENECA-202510GLO006608MY

PATIENT
  Age: 59 Year
  Sex: Female

DRUGS (2)
  1. GEFITINIB [Suspect]
     Active Substance: GEFITINIB
     Indication: Lung adenocarcinoma
     Dosage: 250 MILLIGRAM, QD
     Route: 065
     Dates: start: 201607
  2. GEFITINIB [Suspect]
     Active Substance: GEFITINIB
     Dosage: 250 MILLIGRAM, QD
     Route: 065
     Dates: start: 201607

REACTIONS (2)
  - End stage renal disease [Unknown]
  - Pneumonia [Unknown]
